FAERS Safety Report 8008566-X (Version None)
Quarter: 2011Q4

REPORT INFORMATION
  Report Type: 
  Country: None (occurrence: None)
  Receive Date: 20111227
  Receipt Date: 20111215
  Transmission Date: 20120403
  Serious: Yes (Other)
  Sender: FDA-Public Use
  Company Number: JP-ASTRAZENECA-2011SE70754

PATIENT
  Age: 31811 Day
  Sex: Female

DRUGS (20)
  1. ASPIRIN [Concomitant]
  2. PREDOPA [Concomitant]
  3. MIDAZOLAM HCL [Concomitant]
  4. CARVEDILOL [Concomitant]
  5. MEROPENEM [Suspect]
     Indication: PNEUMONIA
     Route: 042
     Dates: start: 20111104, end: 20111113
  6. PLAVIX [Concomitant]
  7. MUCOSOLVAN [Concomitant]
  8. ALBUMIN (HUMAN) [Concomitant]
  9. DEXTROSE [Concomitant]
  10. LIVALO [Concomitant]
  11. GLUACETO 35 [Concomitant]
  12. CALCIUM CARBONATE [Concomitant]
  13. MAGMITT [Concomitant]
  14. RABEPRAZOLE SODIUM [Concomitant]
  15. HUMULIN R [Concomitant]
  16. ADONA [Concomitant]
  17. TRANEXAMIC ACID [Concomitant]
  18. LANSOPRAZOLE [Concomitant]
  19. KALIMATE [Concomitant]
  20. DEPAS [Concomitant]

REACTIONS (1)
  - BLOOD POTASSIUM INCREASED [None]
